FAERS Safety Report 17060138 (Version 1)
Quarter: 2019Q4

REPORT INFORMATION
  Report Type: Spontaneous
  Country: US (occurrence: US)
  Receive Date: 20191121
  Receipt Date: 20191121
  Transmission Date: 20200122
  Serious: Yes (Other)
  Sender: FDA-Public Use
  Company Number: US-PROCTER_AND_GAMBLE-GS19123430

PATIENT

DRUGS (2)
  1. NYQUIL NOS [Suspect]
     Active Substance: ACETAMINOPHEN\CHLORPHENIRAMINE\DEXTROMETHORPHAN\DIPHENHYDRAMINE\DOXYLAMINE\PSEUDOEPHEDRINE
     Indication: INSOMNIA
     Dosage: UNK
     Route: 048
     Dates: start: 2010, end: 2013
  2. ALCOHOL. [Suspect]
     Active Substance: ALCOHOL
     Indication: INSOMNIA
     Route: 048

REACTIONS (4)
  - Product use in unapproved indication [Unknown]
  - Wrong technique in product usage process [Unknown]
  - Transient ischaemic attack [Unknown]
  - Labelled drug-food interaction medication error [Unknown]

NARRATIVE: CASE EVENT DATE: 2010
